FAERS Safety Report 12473514 (Version 2)
Quarter: 2016Q2

REPORT INFORMATION
  Report Type: Spontaneous
  Country: US (occurrence: US)
  Receive Date: 20160616
  Receipt Date: 20160621
  Transmission Date: 20160815
  Serious: Yes (Other)
  Sender: FDA-Public Use
  Company Number: US-BAUSCH-BL-2016-013906

PATIENT
  Age: 29 Year
  Sex: Male
  Weight: 81.72 kg

DRUGS (1)
  1. EQUATE ARTIFICIAL TEARS [Suspect]
     Active Substance: GLYCERIN\HYPROMELLOSES\POLYETHYLENE GLYCOL 400
     Indication: PRODUCT USED FOR UNKNOWN INDICATION
     Route: 065
     Dates: start: 20160301, end: 20160411

REACTIONS (2)
  - Product container issue [Unknown]
  - Injury corneal [Recovering/Resolving]

NARRATIVE: CASE EVENT DATE: 20160411
